FAERS Safety Report 8604567-9 (Version None)
Quarter: 2012Q3

REPORT INFORMATION
  Report Type: 
  Country: None (occurrence: None)
  Receive Date: 20120807
  Receipt Date: 20120727
  Transmission Date: 20120928
  Serious: Yes (Congenital Anomaly)
  Sender: FDA-Public Use
  Company Number: PD 168

PATIENT

DRUGS (1)
  1. LEVETIRACETAM [Suspect]
     Indication: EPILEPSY
     Dosage: 1000 MG, DAY, ORAL
     Route: 048

REACTIONS (4)
  - NEURAL TUBE DEFECT [None]
  - MATERNAL DRUGS AFFECTING FOETUS [None]
  - CONGENITAL CARDIOVASCULAR ANOMALY [None]
  - MULTIPLE CONGENITAL ABNORMALITIES [None]
